FAERS Safety Report 20152015 (Version 1)
Quarter: 2021Q4

REPORT INFORMATION
  Report Type: Report from Study
  Country: DE (occurrence: DE)
  Receive Date: 20211206
  Receipt Date: 20211206
  Transmission Date: 20220303
  Serious: Yes (Death, Other)
  Sender: FDA-Public Use
  Company Number: DE-BoehringerIngelheim-2021-BI-138335

PATIENT
  Age: 87 Year
  Sex: Male
  Weight: 79.3 kg

DRUGS (8)
  1. PRAXBIND [Suspect]
     Active Substance: IDARUCIZUMAB
     Indication: Cerebral haemorrhage
     Dosage: FORMULATION: SOLUTION
     Route: 042
     Dates: start: 20210502, end: 20210502
  2. SIMVASTATIN [Concomitant]
     Active Substance: SIMVASTATIN
     Indication: Hyperlipidaemia
     Route: 048
     Dates: end: 20210509
  3. RAMIPRIL [Concomitant]
     Active Substance: RAMIPRIL
     Indication: Hypertension
     Route: 048
     Dates: end: 20210509
  4. BISOPROLOL [Concomitant]
     Active Substance: BISOPROLOL
     Indication: Hypertension
     Route: 048
     Dates: end: 20210509
  5. DIGITOXIN [Concomitant]
     Active Substance: DIGITOXIN
     Indication: Atrial fibrillation
     Route: 048
     Dates: end: 20210509
  6. PANTOPRAZOLE SODIUM [Concomitant]
     Active Substance: PANTOPRAZOLE SODIUM
     Indication: Prophylaxis
     Route: 048
     Dates: end: 20210509
  7. TORSEMIDE [Concomitant]
     Active Substance: TORSEMIDE
     Indication: Hypertension
     Route: 048
     Dates: end: 20210508
  8. LEVETIRACETAM [Concomitant]
     Active Substance: LEVETIRACETAM
     Indication: Epilepsy
     Route: 048
     Dates: start: 20210505, end: 20210509

REACTIONS (2)
  - Pneumonia [Fatal]
  - Cerebral haemorrhage [Fatal]

NARRATIVE: CASE EVENT DATE: 20210508
